FAERS Safety Report 4745318-8 (Version None)
Quarter: 2005Q3

REPORT INFORMATION
  Report Type: 
  Country: None (occurrence: None)
  Receive Date: 20050812
  Receipt Date: 20050802
  Transmission Date: 20060218
  Serious: Yes (Death, Hospitalization)
  Sender: FDA-Public Use
  Company Number: HQWYE659602AUG05

PATIENT
  Age: 87 Year
  Sex: Male

DRUGS (7)
  1. PANTECTA (PANTOPRAZOLE, TABLET, DELAYED RELEASE) [Suspect]
     Indication: DUODENITIS
     Dosage: 40 MG 1X PER 1 DAY, ORAL
     Route: 048
     Dates: start: 20030801, end: 20050701
  2. PANTECTA (PANTOPRAZOLE, TABLET, DELAYED RELEASE) [Suspect]
     Indication: GASTRITIS
     Dosage: 40 MG 1X PER 1 DAY, ORAL
     Route: 048
     Dates: start: 20030801, end: 20050701
  3. FUROSEMIDE [Concomitant]
  4. POTASSIUM CHLORIDE [Concomitant]
  5. FOLIC ACID [Concomitant]
  6. ACETYLSALICYLIC ACID SRT [Concomitant]
  7. CLOPIDOGREL BISULFATE [Concomitant]

REACTIONS (4)
  - DRUG INEFFECTIVE [None]
  - ENDOSCOPY UPPER GASTROINTESTINAL TRACT ABNORMAL [None]
  - GASTROINTESTINAL HAEMORRHAGE [None]
  - HIATUS HERNIA [None]
